FAERS Safety Report 20529438 (Version 2)
Quarter: 2022Q2

REPORT INFORMATION
  Report Type: Report from Study
  Country: CA (occurrence: CA)
  Receive Date: 20220228
  Receipt Date: 20220403
  Transmission Date: 20220721
  Serious: Yes (Death)
  Sender: FDA-Public Use
  Company Number: CA-ABBVIE-22K-028-4295388-00

PATIENT
  Age: 74 Year
  Sex: Male

DRUGS (3)
  1. VENCLEXTA [Suspect]
     Active Substance: VENETOCLAX
     Indication: Acute myeloid leukaemia
     Route: 048
     Dates: start: 20210125, end: 20210908
  2. NORVASC [Concomitant]
     Active Substance: AMLODIPINE BESYLATE
     Indication: Product used for unknown indication
  3. CRESTOR [Concomitant]
     Active Substance: ROSUVASTATIN CALCIUM
     Indication: Product used for unknown indication

REACTIONS (2)
  - Leukaemia [Fatal]
  - Drug ineffective [Unknown]

NARRATIVE: CASE EVENT DATE: 20211220
